FAERS Safety Report 22290055 (Version 1)
Quarter: 2023Q2

REPORT INFORMATION
  Report Type: Spontaneous
  Country: US (occurrence: US)
  Receive Date: 20230505
  Receipt Date: 20230505
  Transmission Date: 20230722
  Serious: No
  Sender: FDA-Public Use
  Company Number: US-Millicent Holdings Ltd.-MILL20230111

PATIENT
  Age: 75 Year
  Sex: Female

DRUGS (2)
  1. INTRAROSA [Suspect]
     Active Substance: PRASTERONE
     Indication: Product used for unknown indication
     Dosage: ONE 6.5 MG VAGINAL INSERT, TWICE WEEKLY
     Route: 067
  2. INTRAROSA [Suspect]
     Active Substance: PRASTERONE
     Dosage: ONE 6.5 MG VAGINAL INSERT, TWICE WEEKLY
     Route: 067

REACTIONS (3)
  - Vulvovaginal pain [Recovered/Resolved]
  - Vulvovaginal burning sensation [Recovered/Resolved]
  - Off label use [Not Recovered/Not Resolved]
